FAERS Safety Report 11490854 (Version 1)
Quarter: 2015Q3

REPORT INFORMATION
  Report Type: Spontaneous
  Country: GB (occurrence: GB)
  Receive Date: 20150910
  Receipt Date: 20150910
  Transmission Date: 20151125
  Serious: Yes (Other)
  Sender: FDA-Public Use
  Company Number: GB-PFIZER INC-2015297961

PATIENT
  Age: 33 Year
  Sex: Female
  Weight: 96 kg

DRUGS (1)
  1. TRANEXAMIC ACID. [Suspect]
     Active Substance: TRANEXAMIC ACID
     Dosage: UNK
     Dates: start: 20150824

REACTIONS (3)
  - Rash [Unknown]
  - Petechiae [Unknown]
  - Vasculitic rash [Unknown]

NARRATIVE: CASE EVENT DATE: 20150824
